FAERS Safety Report 4849374-8 (Version None)
Quarter: 2005Q4

REPORT INFORMATION
  Report Type: 
  Country: None (occurrence: None)
  Receive Date: 20051207
  Receipt Date: 20051129
  Transmission Date: 20060501
  Serious: Yes (Death, Hospitalization, Other)
  Sender: FDA-Public Use
  Company Number: VISP-PR-0512S-0601

PATIENT
  Age: 74 Year
  Sex: Female
  Weight: 50.2132 kg

DRUGS (24)
  1. VISIPAQUE [Suspect]
     Dosage: SINGLE DOSE, I.V.
     Route: 042
     Dates: start: 20050128, end: 20050128
  2. SODIUM NITROPRUSSIDE [Concomitant]
  3. CALCIUM CHLORIDE                     (CALCIUM CHLORIDE DIHYDRATE) [Concomitant]
  4. LIDOCAINE [Concomitant]
  5. MAGNESIUM SULFATE [Concomitant]
  6. INSULIN [Concomitant]
  7. CEFAZOLIN SODIUM (ANCEF) [Concomitant]
  8. HEPARIN [Concomitant]
  9. ASPIRIN [Concomitant]
  10. NITROGLYCERIN ^A.L.^ (GLYCERYL TRINITRATE) [Concomitant]
  11. PREVACID [Concomitant]
  12. DOCUSATE SODIUM   (COLACE) [Concomitant]
  13. ZOCOR [Concomitant]
  14. METOPROLOL SUCCINATE [Concomitant]
  15. ALTACE [Concomitant]
  16. TEQUIN [Concomitant]
  17. SPIRAMYCIN              (SPIRA) [Concomitant]
  18. PHENYLEPHRINE HYDROCHLORIDE                   (NEOSYNEPHRINE) [Concomitant]
  19. EPINEPHRINE [Concomitant]
  20. SODIUM BICARBONATE [Concomitant]
  21. MANNITOL [Concomitant]
  22. PROTAMINE [Concomitant]
  23. VANCOMYCIN [Concomitant]
  24. DOPAMINE [Concomitant]

REACTIONS (27)
  - AGITATION [None]
  - ASTHENIA [None]
  - ATELECTASIS [None]
  - ATRIAL FIBRILLATION [None]
  - BLOOD PRESSURE IMMEASURABLE [None]
  - CARDIO-RESPIRATORY ARREST [None]
  - DIALYSIS [None]
  - ELECTROCARDIOGRAM ST SEGMENT DEPRESSION [None]
  - ELECTROCARDIOGRAM T WAVE ABNORMAL [None]
  - ERYTHEMA [None]
  - EXTRASYSTOLES [None]
  - HYPERTENSION [None]
  - INCISION SITE COMPLICATION [None]
  - MULTI-ORGAN FAILURE [None]
  - OEDEMA PERIPHERAL [None]
  - PEDAL PULSE ABSENT [None]
  - PERIPHERAL ISCHAEMIA [None]
  - PLEURAL EFFUSION [None]
  - PRODUCTIVE COUGH [None]
  - PULMONARY OEDEMA [None]
  - RENAL FAILURE ACUTE [None]
  - RESPIRATORY FAILURE [None]
  - SECRETION DISCHARGE [None]
  - SENSORY LOSS [None]
  - SINUS BRADYCARDIA [None]
  - SKIN DISCOLOURATION [None]
  - THROMBOCYTOPENIA [None]
